FAERS Safety Report 9886873 (Version 2)
Quarter: 2014Q1

REPORT INFORMATION
  Report Type: Spontaneous
  Country: US (occurrence: US)
  Receive Date: 20140210
  Receipt Date: 20140215
  Transmission Date: 20141002
  Serious: Yes (Other)
  Sender: FDA-Public Use
  Company Number: US-TEVA-461924USA

PATIENT
  Age: 20 Year
  Sex: Female
  Weight: 59.02 kg

DRUGS (1)
  1. PLAN B ONE-STEP [Suspect]
     Indication: POST COITAL CONTRACEPTION
     Dosage: 1.5 MILLIGRAM DAILY;
     Route: 048
     Dates: start: 201401, end: 201401

REACTIONS (4)
  - Pregnancy after post coital contraception [Unknown]
  - Menstruation delayed [Not Recovered/Not Resolved]
  - Metrorrhagia [Recovered/Resolved]
  - Drug ineffective [Unknown]
